FAERS Safety Report 14031673 (Version 1)
Quarter: 2017Q4

REPORT INFORMATION
  Report Type: Spontaneous
  Country: IN (occurrence: IN)
  Receive Date: 20171002
  Receipt Date: 20171002
  Transmission Date: 20180321
  Serious: Yes (Congenital Anomaly, Other)
  Sender: FDA-Public Use
  Company Number: IN-MYLANLABS-2017M1061042

PATIENT
  Age: 4 Day
  Sex: Male
  Weight: 2.5 kg

DRUGS (1)
  1. PHENYTOIN. [Suspect]
     Active Substance: PHENYTOIN
     Indication: EPILEPSY
     Dosage: 300MG DAILY
     Route: 064

REACTIONS (4)
  - Ventricular dysfunction [Unknown]
  - Tricuspid valve incompetence [Unknown]
  - Foetal exposure during pregnancy [Unknown]
  - Foetal anticonvulsant syndrome [Unknown]
